FAERS Safety Report 23855075 (Version 3)
Quarter: 2025Q2

REPORT INFORMATION
  Report Type: Spontaneous
  Country: US (occurrence: US)
  Receive Date: 20240514
  Receipt Date: 20250510
  Transmission Date: 20250716
  Serious: No
  Sender: SANOFI AVENTIS
  Company Number: US-SA-SAC20240507000842

PATIENT
  Sex: Female
  Weight: 58 kg

DRUGS (3)
  1. DUPIXENT [Suspect]
     Active Substance: DUPILUMAB
     Indication: Dermatitis atopic
     Dosage: 300 MG, QOW
     Route: 058
     Dates: start: 2022
  2. ADVIL [Concomitant]
     Active Substance: IBUPROFEN
  3. EUCRISA [Concomitant]
     Active Substance: CRISABOROLE
     Indication: Eczema

REACTIONS (2)
  - Eczema [Not Recovered/Not Resolved]
  - Drug hypersensitivity [Unknown]
